FAERS Safety Report 4963196-9 (Version None)
Quarter: 2006Q2

REPORT INFORMATION
  Report Type: 
  Country: None (occurrence: None)
  Receive Date: 20060405
  Receipt Date: 20050926
  Transmission Date: 20061013
  Serious: Yes (Hospitalization, Disabling)
  Sender: FDA-Public Use
  Company Number: US-MERCK-0509USA03850

PATIENT
  Age: 39 Year
  Sex: Female
  Weight: 152 kg

DRUGS (1)
  1. VIOXX [Suspect]
     Indication: ARTHRITIS
     Route: 048
     Dates: start: 20000401, end: 20020901

REACTIONS (29)
  - ABDOMINAL ABSCESS [None]
  - ABDOMINAL WALL INFECTION [None]
  - ANOREXIA [None]
  - BREAST CANCER [None]
  - BREAST MASS [None]
  - CONSTIPATION [None]
  - CONTUSION [None]
  - CYSTOCELE [None]
  - DEEP VEIN THROMBOSIS [None]
  - DEHYDRATION [None]
  - FISTULA [None]
  - GASTRIC BYPASS [None]
  - GASTROINTESTINAL DISORDER [None]
  - GASTROINTESTINAL HAEMORRHAGE [None]
  - HAEMATURIA [None]
  - HYPERTENSIVE HEART DISEASE [None]
  - INTERNATIONAL NORMALISED RATIO INCREASED [None]
  - INTESTINAL OBSTRUCTION [None]
  - MENOMETRORRHAGIA [None]
  - NAUSEA [None]
  - PAIN IN EXTREMITY [None]
  - PROTHROMBIN TIME PROLONGED [None]
  - RECTOCELE [None]
  - RETCHING [None]
  - SERRATIA INFECTION [None]
  - SUBCUTANEOUS ABSCESS [None]
  - VOMITING [None]
  - WOUND INFECTION [None]
  - WOUND INFECTION PSEUDOMONAS [None]
